FAERS Safety Report 9736191 (Version 1)
Quarter: 2013Q4

REPORT INFORMATION
  Report Type: Spontaneous
  Country: JP (occurrence: ES)
  Receive Date: 20131206
  Receipt Date: 20131206
  Transmission Date: 20140711
  Serious: Yes (Other)
  Sender: FDA-Public Use
  Company Number: JP-WATSON-2013-21912

PATIENT
  Sex: Male

DRUGS (1)
  1. RAPAFLO (WATSON LABORATORIES) [Suspect]
     Indication: ENURESIS
     Dosage: 8 MG, DAILY
     Route: 048
     Dates: start: 20130708

REACTIONS (1)
  - Ejaculation failure [Unknown]
